FAERS Safety Report 10077583 (Version 2)
Quarter: 2014Q2

REPORT INFORMATION
  Report Type: Spontaneous
  Country: US (occurrence: US)
  Receive Date: 20140414
  Receipt Date: 20140414
  Transmission Date: 20141212
  Serious: No
  Sender: FDA-Public Use
  Company Number: US-BANPHARM-20131899

PATIENT
  Age: 81 Year
  Sex: Male
  Weight: 83.91 kg

DRUGS (9)
  1. ALEVE LIQUID GELS 220 MG [Suspect]
     Dosage: 2 DF, BID,
     Route: 048
     Dates: start: 201311, end: 20131117
  2. ALEVE CAPLETS [Suspect]
     Dosage: 2 DF, BID,
     Route: 048
  3. TAMSULOSIN [Concomitant]
  4. SIMVASTATIN [Concomitant]
  5. FINASTERIDE [Concomitant]
  6. BENAZEPRIL [Concomitant]
  7. VITAMIN D3 [Concomitant]
  8. OSCAL [Concomitant]
  9. FAMOTIDINE [Concomitant]

REACTIONS (4)
  - Drug effect incomplete [Unknown]
  - Therapeutic response changed [Unknown]
  - Incorrect dose administered [Unknown]
  - Off label use [Unknown]
